FAERS Safety Report 4779957-5 (Version None)
Quarter: 2005Q3

REPORT INFORMATION
  Report Type: 
  Country: None (occurrence: None)
  Receive Date: 20050927
  Receipt Date: 20050620
  Transmission Date: 20060218
  Serious: Yes (Hospitalization)
  Sender: FDA-Public Use
  Company Number: FR-GLAXOSMITHKLINE-B0384991A

PATIENT
  Age: 52 Year
  Sex: Male

DRUGS (6)
  1. CLAMOXYL [Suspect]
     Indication: COUGH
     Route: 048
  2. DERINOX [Concomitant]
     Indication: COUGH
     Route: 065
  3. SOLU-MEDROL [Concomitant]
     Route: 065
  4. KETOCONAZOLE [Concomitant]
     Route: 061
  5. FEXOFENADINE HCL [Concomitant]
     Route: 065
  6. PNEUMOREL [Concomitant]
     Indication: COUGH
     Route: 065

REACTIONS (8)
  - ARTHRALGIA [None]
  - C-REACTIVE PROTEIN INCREASED [None]
  - CHILLS [None]
  - CHROMATURIA [None]
  - INFLAMMATION [None]
  - PYREXIA [None]
  - SERUM SICKNESS [None]
  - URTICARIA GENERALISED [None]
